FAERS Safety Report 4414845-5 (Version None)
Quarter: 2004Q3

REPORT INFORMATION
  Report Type: 
  Country: None (occurrence: None)
  Receive Date: 20040804
  Receipt Date: 20031202
  Transmission Date: 20050211
  Serious: No
  Sender: FDA-Public Use
  Company Number: US-BRISTOL-MYERS SQUIBB COMPANY-12448288

PATIENT
  Age: 52 Year
  Sex: Male
  Weight: 118 kg

DRUGS (7)
  1. GLUCOVANCE [Suspect]
     Indication: DIABETES MELLITUS
     Dosage: DOSAGE FORM= 1.25/250 MG
     Route: 048
  2. LIPITOR [Concomitant]
  3. COREG [Concomitant]
  4. ALTACE [Concomitant]
  5. NIACIN [Concomitant]
  6. ASPIRIN [Concomitant]
  7. PROTONIX [Concomitant]

REACTIONS (1)
  - DIZZINESS [None]
